FAERS Safety Report 10206951 (Version 2)
Quarter: 2014Q2

REPORT INFORMATION
  Report Type: Spontaneous
  Country: US (occurrence: US)
  Receive Date: 20140530
  Receipt Date: 20140623
  Transmission Date: 20141212
  Serious: Yes (Hospitalization)
  Sender: FDA-Public Use
  Company Number: US-B.I. PHARMACEUTICALS,INC./RIDGEFIELD-2014-BI-23269BP

PATIENT
  Age: 86 Year
  Sex: Female
  Weight: 48.08 kg

DRUGS (4)
  1. PRADAXA [Suspect]
     Indication: ATRIAL FIBRILLATION
     Dosage: 150 MG
     Route: 048
     Dates: start: 201312
  2. AMLODIPINE [Concomitant]
     Indication: HYPERTENSION
     Route: 048
  3. BISOPROLOL [Concomitant]
     Indication: HYPERTENSION
     Route: 048
  4. DIGOXIN [Concomitant]
     Indication: ATRIAL FIBRILLATION
     Route: 048

REACTIONS (4)
  - Eye injury [Recovered/Resolved]
  - Wrist fracture [Not Recovered/Not Resolved]
  - Fall [Recovered/Resolved]
  - Epistaxis [Recovered/Resolved]
